FAERS Safety Report 15948849 (Version 1)
Quarter: 2019Q1

REPORT INFORMATION
  Report Type: Spontaneous
  Country: IT (occurrence: IT)
  Receive Date: 20190211
  Receipt Date: 20190211
  Transmission Date: 20190417
  Serious: Yes (Other)
  Sender: FDA-Public Use
  Company Number: IT-BRISTOL-MYERS SQUIBB COMPANY-BMS-2019-012129

PATIENT
  Age: 50 Year
  Sex: Male
  Weight: 59 kg

DRUGS (2)
  1. AZACTAM [Suspect]
     Active Substance: AZTREONAM
     Indication: CYSTIC FIBROSIS
     Dosage: 6 G, 1 DAY
     Route: 042
     Dates: start: 20190125, end: 20190125
  2. AMIKACIN SULFATE. [Concomitant]
     Active Substance: AMIKACIN SULFATE
     Indication: CYSTIC FIBROSIS
     Dosage: 3 G, 1 DAY
     Route: 042
     Dates: start: 20190125, end: 20190125

REACTIONS (2)
  - Bronchospasm [Recovered/Resolved]
  - Atrial fibrillation [Recovered/Resolved]

NARRATIVE: CASE EVENT DATE: 20190125
